FAERS Safety Report 8958370 (Version 1)
Quarter: 2012Q4

REPORT INFORMATION
  Report Type: 
  Country: MX (occurrence: MX)
  Receive Date: 20121210
  Receipt Date: 20121210
  Transmission Date: 20130627
  Serious: Yes (Other)
  Sender: FDA-Public Use
  Company Number: MX-GLAXOSMITHKLINE-A1004573A

PATIENT
  Age: 84 Year
  Sex: Female

DRUGS (2)
  1. AROPAX [Suspect]
     Indication: DEPRESSION
     Dosage: 20MG Per day
     Route: 048
     Dates: end: 20121116
  2. CO-DIOVAN [Concomitant]
     Indication: HYPERTENSION
     Dosage: 1TAB Per day
     Dates: start: 2007

REACTIONS (5)
  - Senile dementia [Not Recovered/Not Resolved]
  - Paralysis [Not Recovered/Not Resolved]
  - Hypokinesia [Not Recovered/Not Resolved]
  - Aphasia [Not Recovered/Not Resolved]
  - Hypertension [Not Recovered/Not Resolved]
